FAERS Safety Report 5242934-4 (Version None)
Quarter: 2007Q1

REPORT INFORMATION
  Report Type: 
  Country: None (occurrence: None)
  Receive Date: 20070215
  Receipt Date: 20070205
  Transmission Date: 20070707
  Serious: Yes (Other)
  Sender: FDA-Public Use
  Company Number: 236321K06USA

PATIENT
  Age: 59 Year
  Sex: Male
  Weight: 95.2554 kg

DRUGS (6)
  1. REBIF [Suspect]
     Indication: MULTIPLE SCLEROSIS
     Dosage: 8.8 MCG, 3 IN 1 WEEKS, SUBCUTANEOUS
     Route: 058
     Dates: start: 20060829, end: 20060901
  2. PLAVIX [Concomitant]
  3. LIPITOR [Concomitant]
  4. ASPIRIN [Concomitant]
  5. METOPROLOL (METOPROLOL/00376901) [Concomitant]
  6. AVONEX [Concomitant]

REACTIONS (9)
  - ANTIPHOSPHOLIPID ANTIBODIES POSITIVE [None]
  - BACK INJURY [None]
  - CEREBROVASCULAR ACCIDENT [None]
  - COAGULOPATHY [None]
  - FALL [None]
  - LORDOSIS POST SURGICAL [None]
  - MYELITIS TRANSVERSE [None]
  - NERVOUS SYSTEM DISORDER [None]
  - QUADRIPARESIS [None]
